FAERS Safety Report 22170946 (Version 1)
Quarter: 2023Q2

REPORT INFORMATION
  Report Type: Spontaneous
  Country: DE (occurrence: DE)
  Receive Date: 20230404
  Receipt Date: 20230404
  Transmission Date: 20230722
  Serious: Yes (Hospitalization)
  Sender: FDA-Public Use
  Company Number: DE-ROCHE-357505

PATIENT
  Age: 33 Year
  Sex: Female
  Weight: 52 kg

DRUGS (60)
  1. CLONAZEPAM [Suspect]
     Active Substance: CLONAZEPAM
     Indication: Epilepsy
     Dosage: PRN.
     Route: 042
     Dates: start: 20011112, end: 20011205
  2. MIDAZOLAM [Suspect]
     Active Substance: MIDAZOLAM
     Indication: Pain
     Route: 042
     Dates: start: 20011113, end: 20011117
  3. HEPARIN SODIUM [Suspect]
     Active Substance: HEPARIN SODIUM
     Indication: Thrombosis prophylaxis
     Route: 042
     Dates: start: 20011126, end: 20011203
  4. FOSFOMYCIN [Suspect]
     Active Substance: FOSFOMYCIN
     Indication: Infection
     Route: 042
     Dates: start: 20011130, end: 20011205
  5. LASIX [Suspect]
     Active Substance: FUROSEMIDE
     Indication: Oedema
     Route: 042
     Dates: end: 20011126
  6. NOVALGIN (METAMIZOLE SODIUM) [Suspect]
     Active Substance: METAMIZOLE SODIUM
     Indication: Pain
     Dosage: PRN.
     Route: 042
     Dates: start: 20011128, end: 20011202
  7. TAVOR (LORAZEPAM) [Suspect]
     Active Substance: LORAZEPAM
     Route: 048
     Dates: start: 20011118, end: 20011202
  8. LAMICTAL [Suspect]
     Active Substance: LAMOTRIGINE
     Indication: Epilepsy
     Route: 048
     Dates: start: 20011112, end: 20011114
  9. LAMICTAL [Suspect]
     Active Substance: LAMOTRIGINE
     Route: 048
     Dates: start: 20011118, end: 20011124
  10. SULFAMETHOXAZOLE\TRIMETHOPRIM [Suspect]
     Active Substance: SULFAMETHOXAZOLE\TRIMETHOPRIM
     Indication: Infection
     Route: 042
     Dates: start: 20011116, end: 20011120
  11. NADROPARIN CALCIUM [Suspect]
     Active Substance: NADROPARIN CALCIUM
     Indication: Thrombosis prophylaxis
     Route: 058
     Dates: start: 20011117, end: 20011124
  12. DIFLUCAN [Suspect]
     Active Substance: FLUCONAZOLE
     Indication: Candida infection
     Route: 042
     Dates: start: 20011118, end: 20011120
  13. CIPROFLOXACIN [Suspect]
     Active Substance: CIPROFLOXACIN
     Indication: Infection
     Route: 042
     Dates: start: 20011121, end: 20011123
  14. AMOXICILLIN\CLAVULANATE POTASSIUM [Suspect]
     Active Substance: AMOXICILLIN\CLAVULANATE POTASSIUM
     Indication: Infection
     Route: 042
     Dates: start: 20011121, end: 20011123
  15. NOVODIGAL (.BETA.-ACETYLDIGOXIN) [Suspect]
     Active Substance: .BETA.-ACETYLDIGOXIN
     Indication: Cardiac failure
     Route: 042
     Dates: start: 20011121, end: 20011202
  16. EGG PHOSPHOLIPIDS\GLYCERIN\SOYBEAN OIL [Suspect]
     Active Substance: EGG PHOSPHOLIPIDS\GLYCERIN\SOYBEAN OIL
     Indication: Parenteral nutrition
     Dosage: DAILY, PRN.
     Route: 042
     Dates: start: 20011121, end: 20011205
  17. RANITIDINE HYDROCHLORIDE [Suspect]
     Active Substance: RANITIDINE HYDROCHLORIDE
     Indication: Prophylaxis against gastrointestinal ulcer
     Route: 042
     Dates: start: 20011123, end: 20011126
  18. URSODIOL [Suspect]
     Active Substance: URSODIOL
     Indication: Cholelithiasis
     Dosage: AMOUNT PER ADMINISTRATION :3 DF
     Route: 048
     Dates: start: 20011123, end: 20011128
  19. ORNITHINE ASPARTATE [Suspect]
     Active Substance: ORNITHINE ASPARTATE
     Indication: Liver disorder
     Dosage: AMOUNT PER ADMINISTRATION :4 DF
     Route: 048
     Dates: start: 20011124, end: 20011128
  20. AMINO ACIDS [Suspect]
     Active Substance: AMINO ACIDS
     Indication: Parenteral nutrition
     Route: 042
     Dates: start: 20011124, end: 20011130
  21. ACTRAPID [Suspect]
     Active Substance: INSULIN HUMAN
     Indication: Metabolic disorder
     Route: 042
     Dates: start: 20011124, end: 20011202
  22. LACTULOSE [Suspect]
     Active Substance: LACTULOSE
     Indication: Constipation
     Route: 048
     Dates: start: 20011128, end: 20011205
  23. CLAFORAN [Suspect]
     Active Substance: CEFOTAXIME SODIUM
     Indication: Infection
     Route: 042
     Dates: start: 20011130, end: 20011201
  24. FERRLECIT [Suspect]
     Active Substance: SODIUM FERRIC GLUCONATE COMPLEX
     Indication: Iron deficiency
     Dosage: DAILY DOSE=1 AMPULE
     Route: 042
     Dates: start: 20011205, end: 20011205
  25. KETAMINE HYDROCHLORIDE [Suspect]
     Active Substance: KETAMINE HYDROCHLORIDE
     Indication: Stupor
     Route: 042
     Dates: start: 20011205, end: 20011205
  26. CLONIDINE [Suspect]
     Active Substance: CLONIDINE
     Indication: Hypertension
     Dosage: UNIT DOSE=6 AMPULE
     Route: 042
     Dates: start: 20011205
  27. THEOPHYLLINE [Suspect]
     Active Substance: THEOPHYLLINE
     Dosage: DOSE: 6 MG/HR.
     Route: 042
     Dates: start: 20011205
  28. HEPARIN [Concomitant]
     Active Substance: HEPARIN SODIUM
     Indication: Thrombosis prophylaxis
     Route: 058
     Dates: start: 20011109, end: 20011109
  29. ATOSIL [Concomitant]
     Route: 042
     Dates: end: 20011111
  30. BRICANYL [Concomitant]
     Active Substance: TERBUTALINE SULFATE
     Indication: Obstructive airways disorder
     Dosage: FREQUENCY: PRN. UNIT DOSE=.5 AMPULE
     Route: 042
     Dates: end: 20011112
  31. VANCOMYCIN [Concomitant]
     Active Substance: VANCOMYCIN
     Indication: Infection
     Route: 042
     Dates: end: 20011113
  32. AKINETON [Concomitant]
     Active Substance: BIPERIDEN HYDROCHLORIDE
     Indication: Extrapyramidal disorder
     Route: 042
     Dates: end: 20011113
  33. CILASTATIN SODIUM\IMIPENEM [Concomitant]
     Active Substance: CILASTATIN SODIUM\IMIPENEM
     Indication: Infection
     Route: 042
     Dates: end: 20011113
  34. VALPROIC ACID [Concomitant]
     Active Substance: VALPROIC ACID
     Indication: Epilepsy
     Route: 042
     Dates: end: 20011115
  35. IRON [Concomitant]
     Active Substance: IRON
     Indication: Iron deficiency
     Dosage: DAILY DOSE=1 AMPULE
     Route: 042
     Dates: end: 20011116
  36. SAB SIMPLEX [Concomitant]
     Indication: Flatulence
     Dosage: AMOUNT PER ADMINISTRATION :60 DRP
     Route: 048
     Dates: end: 20011120
  37. PANTOPRAZOLE [Concomitant]
     Active Substance: PANTOPRAZOLE
     Indication: Prophylaxis against gastrointestinal ulcer
     Route: 042
     Dates: end: 20011121
  38. VITAMIN B1 [Concomitant]
     Active Substance: THIAMINE HYDROCHLORIDE
     Indication: Vitamin B1 deficiency
     Dosage: DOSE: REPORTED AS 100.
     Route: 042
     Dates: end: 20011126
  39. VITAMIN B COMPLEX NOS [Concomitant]
     Active Substance: CYANOCOBALAMIN\PYRIDOXINE HYDROCHLORIDE\RIBOFLAVIN\SODIUM PANTOTHENATE\THIAMINE HYDROCHLORIDE\VITAMI
     Indication: Vitamin B complex deficiency
     Dosage: DAILY DOSE=1 AMPULE
     Route: 042
  40. AMINO ACIDS\DEXTROSE\ELECTROLYTES NOS [Concomitant]
     Active Substance: AMINO ACIDS\DEXTROSE\ELECTROLYTES NOS
     Indication: Parenteral nutrition
     Route: 042
     Dates: end: 20011123
  41. ALBUMIN HUMAN [Concomitant]
     Active Substance: ALBUMIN HUMAN
     Indication: Fluid replacement
     Dosage: 100 ML TREATMENT WAS DISCONTINUED ON 16 NOV 2001. 200 ML TREATMENT WAS FROM 21 NOV 2001 TO 24 NOV 2+
     Route: 042
     Dates: end: 20011124
  42. FERRO-FOLSAN [Concomitant]
     Indication: Iron deficiency
     Dosage: AMOUNT PER ADMINISTRATION :40 DRP
     Route: 048
     Dates: end: 20011128
  43. SODIUM CHLORIDE [Concomitant]
     Active Substance: SODIUM CHLORIDE
     Indication: Fluid replacement
     Route: 042
     Dates: end: 20011130
  44. XYLOMETAZOLINE HYDROCHLORIDE [Concomitant]
     Active Substance: XYLOMETAZOLINE HYDROCHLORIDE
     Indication: Nasopharyngitis
     Dosage: AMOUNT PER ADMINISTRATION :3 DF
     Route: 045
     Dates: end: 20011130
  45. NYSTATIN [Concomitant]
     Active Substance: NYSTATIN
     Dosage: FREQUENCY: SEVERAL TIMES A DAY.
     Dates: end: 20011202
  46. XANEF [Concomitant]
     Indication: Cardiac failure
     Route: 048
     Dates: end: 20011202
  47. NOREPINEPHRINE HYDROCHLORIDE, (+/-)- [Concomitant]
     Active Substance: NOREPINEPHRINE HYDROCHLORIDE, (+/-)-
     Indication: Shock
     Route: 042
     Dates: start: 20011109, end: 20011203
  48. PREDNISOLONE [Concomitant]
     Active Substance: PREDNISOLONE
     Indication: Colitis ulcerative
     Route: 042
     Dates: end: 20011205
  49. POTASSIUM CHLORIDE [Concomitant]
     Active Substance: POTASSIUM CHLORIDE
     Indication: Metabolic disorder
     Route: 042
     Dates: end: 20011117
  50. DEXTROSE [Concomitant]
     Active Substance: DEXTROSE\DEXTROSE MONOHYDRATE
     Indication: Fluid replacement
     Dosage: DOSE REGIMEN WAS REPORTED AS : 5% AT 2000 ML / DAY, 40% AT 500 ML / DAY AND 70 % AT 2000 ML /DAY.
     Route: 042
     Dates: end: 20011205
  51. KONAKION [Concomitant]
     Active Substance: PHYTONADIONE
     Indication: Vitamin K deficiency
     Dosage: DOSE WAS ALSO REPORTED AS 2 MG. DAILY DOSE=.5 AMPULE
     Route: 042
     Dates: end: 20011113
  52. MINERALS\PROBIOTICS NOS\VITAMINS [Concomitant]
     Active Substance: MINERALS\PROBIOTICS NOS\VITAMINS
     Indication: Hypovitaminosis
     Dosage: DAILY DOSE=1 AMPULE
     Route: 042
     Dates: start: 20011205, end: 20011205
  53. PIRITRAMIDE [Concomitant]
     Active Substance: PIRITRAMIDE
     Indication: Pain
     Dosage: 21 NOV 2001:3 MG, QDS WAS DISCONTINUED.?05 DEC 2001: 3 MG, TID, PRN WAS STARTED.
     Route: 042
  54. CALCIUM [Concomitant]
     Active Substance: CALCIUM
     Dosage: DOSAGE REGIMEN: ?26 NOV 2001:10 ML / DAY OF 20% AMPOULE WAS DISCONTINUED.?05 DEC 2001: 1 AMPOULE OF+
     Route: 042
  55. PASPERTIN [Concomitant]
     Indication: Nausea
     Dosage: DAILY DOSE=1 AMPULE
     Route: 042
     Dates: start: 20011113, end: 20011117
  56. KETAMINE [Concomitant]
     Active Substance: KETAMINE
     Indication: Pain
     Route: 042
     Dates: start: 20011113, end: 20011117
  57. CLONT [Concomitant]
     Indication: Infection
     Route: 042
     Dates: start: 20011115, end: 20011120
  58. FENTANYL [Concomitant]
     Active Substance: FENTANYL
     Indication: Pain
     Dosage: DOSE WAS ALSO REPORTED AS 1.5 MG. DAILY DOSE=3 AMPULE
     Route: 042
     Dates: start: 20011120, end: 20011120
  59. DOBUTAMINE HYDROCHLORIDE [Concomitant]
     Active Substance: DOBUTAMINE HYDROCHLORIDE
     Indication: Cardiac failure
     Route: 042
     Dates: start: 20011121, end: 20011121
  60. VITINTRA [Concomitant]
     Active Substance: ERGOCALCIFEROL\PHYTONADIONE\RETINOL\VITAMIN A PALMITATE
     Indication: Parenteral nutrition
     Dosage: DOSE: 1 AMPOULE PER DAY, PRN.
     Route: 042
     Dates: start: 20011121, end: 20011205

REACTIONS (3)
  - Stevens-Johnson syndrome [Recovered/Resolved]
  - Sepsis [Recovered/Resolved]
  - Toxic epidermal necrolysis [Recovered/Resolved]

NARRATIVE: CASE EVENT DATE: 20011128
